FAERS Safety Report 15936939 (Version 2)
Quarter: 2019Q2

REPORT INFORMATION
  Report Type: Spontaneous
  Country: US (occurrence: US)
  Receive Date: 20190208
  Receipt Date: 20190412
  Transmission Date: 20190711
  Serious: Yes (Other)
  Sender: FDA-Public Use
  Company Number: US-ASTRAZENECA-2018SF22436

PATIENT

DRUGS (17)
  1. LANTUS [Concomitant]
     Active Substance: INSULIN GLARGINE
  2. METFORMIN [Concomitant]
     Active Substance: METFORMIN HYDROCHLORIDE
  3. ATENOLOL. [Concomitant]
     Active Substance: ATENOLOL
  4. STENDRA [Concomitant]
     Active Substance: AVANAFIL
  5. NIFEDIPINE. [Concomitant]
     Active Substance: NIFEDIPINE
  6. ONDANSETRON [Concomitant]
     Active Substance: ONDANSETRON
  7. NAPROXEN. [Concomitant]
     Active Substance: NAPROXEN
  8. ACETAMINOPHEN. [Concomitant]
     Active Substance: ACETAMINOPHEN
  9. PREVACID [Suspect]
     Active Substance: LANSOPRAZOLE
     Indication: GASTROOESOPHAGEAL REFLUX DISEASE
     Route: 065
     Dates: start: 1993
  10. HYDROCODONE [Concomitant]
     Active Substance: HYDROCODONE
  11. TRIAMTERENE. [Concomitant]
     Active Substance: TRIAMTERENE
  12. AMOXICILLIN. [Concomitant]
     Active Substance: AMOXICILLIN
  13. GLIPIZIDE. [Concomitant]
     Active Substance: GLIPIZIDE
  14. CYCLOBENZAPRINE. [Concomitant]
     Active Substance: CYCLOBENZAPRINE
  15. PRILOSEC [Suspect]
     Active Substance: OMEPRAZOLE MAGNESIUM
     Indication: GASTROOESOPHAGEAL REFLUX DISEASE
     Route: 048
     Dates: start: 1993
  16. PROTONIX [Suspect]
     Active Substance: PANTOPRAZOLE SODIUM
     Indication: GASTROOESOPHAGEAL REFLUX DISEASE
     Route: 065
     Dates: start: 1993
  17. LOVASTATIN. [Concomitant]
     Active Substance: LOVASTATIN

REACTIONS (1)
  - Chronic kidney disease [Not Recovered/Not Resolved]
